FAERS Safety Report 6937543-2 (Version None)
Quarter: 2010Q3

REPORT INFORMATION
  Report Type: 
  Country: None (occurrence: None)
  Receive Date: 20100823
  Receipt Date: 20100816
  Transmission Date: 20110219
  Serious: Yes (Hospitalization)
  Sender: FDA-Public Use
  Company Number: US-AMGEN-KDC431471

PATIENT
  Age: 48 Year
  Sex: Male
  Weight: 93 kg

DRUGS (5)
  1. PANITUMUMAB [Suspect]
     Indication: PANCREATIC CARCINOMA
     Dates: start: 20100708
  2. GEMZAR [Suspect]
     Dates: start: 20100708
  3. TARCEVA [Suspect]
     Route: 048
     Dates: start: 20100708
  4. COUMADIN [Suspect]
     Dates: start: 20100719
  5. LOVENOX [Suspect]
     Dates: start: 20100719

REACTIONS (2)
  - PULMONARY EMBOLISM [None]
  - THROMBOSIS [None]
